FAERS Safety Report 7088851-9 (Version None)
Quarter: 2010Q4

REPORT INFORMATION
  Report Type: 
  Country: None (occurrence: None)
  Receive Date: 20101108
  Receipt Date: 20101027
  Transmission Date: 20110411
  Serious: Yes (Other)
  Sender: FDA-Public Use
  Company Number: GB-PFIZER INC-2010136620

PATIENT
  Sex: Male

DRUGS (1)
  1. LIPITOR [Suspect]
     Indication: LIPIDS INCREASED
     Dosage: UNK
     Dates: start: 20090101

REACTIONS (1)
  - GLOMERULAR FILTRATION RATE ABNORMAL [None]
